FAERS Safety Report 6978509-6 (Version None)
Quarter: 2010Q3

REPORT INFORMATION
  Report Type: 
  Country: None (occurrence: None)
  Receive Date: 20100913
  Receipt Date: 20100906
  Transmission Date: 20110219
  Serious: Yes (Life-Threatening, Hospitalization, Other)
  Sender: FDA-Public Use
  Company Number: US-ROXANE LABORATORIES, INC.-2010-DE-04922GD

PATIENT
  Age: 50 Year
  Sex: Female

DRUGS (3)
  1. ORAMORPH SR [Suspect]
  2. RELISTOR [Suspect]
     Indication: CONSTIPATION
     Dosage: 8 MG
  3. HYDROMORPHONE HCL [Suspect]

REACTIONS (7)
  - CONSTIPATION [None]
  - HYPOTENSION [None]
  - INTESTINAL OBSTRUCTION [None]
  - INTESTINAL PERFORATION [None]
  - MULTI-ORGAN FAILURE [None]
  - SEPSIS [None]
  - TACHYCARDIA [None]
